FAERS Safety Report 4990033-9 (Version None)
Quarter: 2006Q2

REPORT INFORMATION
  Report Type: 
  Country: None (occurrence: None)
  Receive Date: 20060427
  Receipt Date: 20060418
  Transmission Date: 20061013
  Serious: Yes (Hospitalization)
  Sender: FDA-Public Use
  Company Number: 2006039253

PATIENT
  Age: 84 Year
  Sex: Female

DRUGS (9)
  1. AMLODIPINE [Suspect]
     Indication: ISCHAEMIC CARDIOMYOPATHY
     Dosage: 5 MG (5 MG, 1 IN 1 D); ORAL
     Route: 048
     Dates: end: 20051002
  2. NITROSTAT [Suspect]
     Indication: ISCHAEMIC CARDIOMYOPATHY
     Dosage: 1 DOSE FORM (1 IN 1 D) TOPICAL
     Route: 061
  3. POTASSIUM CHLORIDE [Suspect]
     Indication: ISCHAEMIC CARDIOMYOPATHY
     Dosage: 2 DOSE FORM (2 IN 1 D); ORAL
     Route: 048
  4. FLUINDIONE (FLUINDIONE) [Suspect]
     Indication: ISCHAEMIC CARDIOMYOPATHY
     Dosage: 5 MG (20 MG, 1 IN 1 D) ORAL
     Route: 048
  5. FUROSEMIDE [Suspect]
     Indication: ISCHAEMIC CARDIOMYOPATHY
     Dosage: 1 DOSE FORM (1 IN 1 D); ORAL
     Route: 048
  6. EBASTINE [Suspect]
     Indication: ILL-DEFINED DISORDER
     Dosage: 10 MG (10 MG, 1 IN 1 D); ORAL
     Route: 048
     Dates: end: 20051001
  7. SPIRONOLACTONE W/HYDROCHLOROTHIAZIDE) (HYDROCHLOROTHIAZIDE, SPIRONOLAC [Concomitant]
  8. BUFLOMEDIL HYDROCHLORIDE [Concomitant]
  9. SULPIRIDE [Concomitant]

REACTIONS (22)
  - ASTHENIA [None]
  - BETA 2 MICROGLOBULIN INCREASED [None]
  - BLOOD FOLATE DECREASED [None]
  - BLOOD IMMUNOGLOBULIN E INCREASED [None]
  - BLOOD LACTATE DEHYDROGENASE INCREASED [None]
  - CD4/CD8 RATIO INCREASED [None]
  - CHILLS [None]
  - DERMATITIS EXFOLIATIVE [None]
  - DRY SKIN [None]
  - ECTROPION [None]
  - ECZEMA [None]
  - EOSINOPHIL COUNT ABNORMAL [None]
  - INFLAMMATION [None]
  - LYMPHOMA [None]
  - MACROCYTOSIS [None]
  - MYCOSIS FUNGOIDES [None]
  - PRURITUS GENERALISED [None]
  - SCRATCH [None]
  - SKIN LESION [None]
  - TOXIC SKIN ERUPTION [None]
  - VITAMIN C DEFICIENCY [None]
  - WEIGHT DECREASED [None]
